FAERS Safety Report 6939396-5 (Version None)
Quarter: 2010Q3

REPORT INFORMATION
  Report Type: 
  Country: None (occurrence: None)
  Receive Date: 20100824
  Receipt Date: 20100507
  Transmission Date: 20110219
  Serious: Yes (Other)
  Sender: FDA-Public Use
  Company Number: A0859673A

PATIENT
  Age: 66 Year
  Sex: Female

DRUGS (2)
  1. ARZERRA [Suspect]
     Route: 042
     Dates: start: 20100504, end: 20100504
  2. MULTIPLE MEDICATIONS [Concomitant]

REACTIONS (4)
  - INFUSION RELATED REACTION [None]
  - RASH [None]
  - UNDERDOSE [None]
  - URTICARIA [None]
